FAERS Safety Report 8251969-9 (Version None)
Quarter: 2012Q2

REPORT INFORMATION
  Report Type: 
  Country: None (occurrence: None)
  Receive Date: 20120402
  Receipt Date: 20120326
  Transmission Date: 20120825
  Serious: Yes (Other)
  Sender: FDA-Public Use
  Company Number: PHHY2012GB007709

PATIENT
  Age: 49 Year
  Sex: Female
  Weight: 71 kg

DRUGS (8)
  1. MULTI-VITAMIN [Concomitant]
     Indication: ALCOHOL USE
     Route: 048
  2. THIAMINE HCL [Concomitant]
     Indication: ALCOHOL USE
     Dosage: 200 MG, UNK
     Route: 048
  3. TRAMADOL HCL [Suspect]
     Indication: PAIN
     Route: 048
     Dates: start: 20110102, end: 20120109
  4. FLUOXETINE [Suspect]
     Dates: start: 20120116
  5. PABRINEX [Concomitant]
     Indication: ALCOHOL USE
  6. FOLIC ACID [Concomitant]
  7. FLUOXETINE [Suspect]
  8. ACETAMINOPHEN [Concomitant]
     Indication: PAIN
     Dosage: 1 G, QD
     Route: 048

REACTIONS (2)
  - HYPOGLYCAEMIA [None]
  - CONVULSION [None]
